FAERS Safety Report 7552370-3 (Version None)
Quarter: 2011Q2

REPORT INFORMATION
  Report Type: 
  Country: None (occurrence: None)
  Receive Date: 20110616
  Receipt Date: 20081001
  Transmission Date: 20111010
  Serious: Yes (Death)
  Sender: FDA-Public Use
  Company Number: PHHY2008AU21811

PATIENT
  Sex: Male

DRUGS (1)
  1. CLOZAPINE [Suspect]
     Indication: SCHIZOPHRENIA
     Dosage: 700 MG, UNK
     Route: 048
     Dates: start: 20060424, end: 20080918

REACTIONS (3)
  - RESPIRATORY DISTRESS [None]
  - LOSS OF CONSCIOUSNESS [None]
  - DYSPNOEA [None]
